FAERS Safety Report 5080946-4 (Version None)
Quarter: 2006Q3

REPORT INFORMATION
  Report Type: 
  Country: None (occurrence: None)
  Receive Date: 20060810
  Receipt Date: 20060530
  Transmission Date: 20061208
  Serious: Yes (Hospitalization, Other)
  Sender: FDA-Public Use
  Company Number: 2006-02-0060

PATIENT
  Age: 75 Year
  Sex: Female
  Weight: 39 kg

DRUGS (6)
  1. CLARITIN [Suspect]
     Indication: ECZEMA NUMMULAR
     Dosage: 20 MG ORAL
     Route: 048
     Dates: start: 20050806, end: 20051209
  2. NORVASC [Concomitant]
  3. BLOPRESS (CANDESARTAN CILEXETIL) TABLETS [Concomitant]
  4. PERSANTIN TABLETS [Concomitant]
  5. MAGNESIUM OXIDE [Concomitant]
  6. PURSENNID TABLETS [Concomitant]

REACTIONS (4)
  - DECUBITUS ULCER [None]
  - FACE OEDEMA [None]
  - HYPOALBUMINAEMIA [None]
  - HYPOPROTEINAEMIA [None]
